FAERS Safety Report 4445176-5 (Version None)
Quarter: 2004Q3

REPORT INFORMATION
  Report Type: 
  Country: None (occurrence: None)
  Receive Date: 20040819
  Receipt Date: 20031222
  Transmission Date: 20050211
  Serious: Yes (Hospitalization, Other)
  Sender: FDA-Public Use
  Company Number: 2003126311

PATIENT
  Age: 96 Year
  Sex: Female
  Weight: 40.8237 kg

DRUGS (4)
  1. NORVASC [Suspect]
     Indication: HYPERTENSION
     Dosage: 2.5 MG (DAILY), ORAL
     Route: 048
     Dates: start: 20010101, end: 20031125
  2. DIGOXIN [Concomitant]
  3. PREDNISONE [Concomitant]
  4. NITROGLYCERIN [Concomitant]

REACTIONS (1)
  - MYOCARDIAL INFARCTION [None]
